FAERS Safety Report 7505409-5 (Version None)
Quarter: 2011Q2

REPORT INFORMATION
  Report Type: 
  Country: None (occurrence: None)
  Receive Date: 20110526
  Receipt Date: 20110512
  Transmission Date: 20111010
  Serious: Yes (Other)
  Sender: FDA-Public Use
  Company Number: PHHY2011JP35617

PATIENT
  Age: 18 Year
  Sex: Female

DRUGS (4)
  1. DOPASTON [Concomitant]
  2. SUMIFERON [Concomitant]
  3. CARBAMAZEPINE [Suspect]
     Indication: SUBACUTE SCLEROSING PANENCEPHALITIS
     Route: 048
  4. ISOPRINOSINE [Concomitant]
     Route: 048

REACTIONS (3)
  - LOCAL SWELLING [None]
  - DISEASE PROGRESSION [None]
  - HYPOTHYROIDISM [None]
